FAERS Safety Report 7408740-7 (Version None)
Quarter: 2011Q2

REPORT INFORMATION
  Report Type: 
  Country: None (occurrence: None)
  Receive Date: 20110412
  Receipt Date: 20110411
  Transmission Date: 20111010
  Serious: Yes (Hospitalization)
  Sender: FDA-Public Use
  Company Number: FR-BRISTOL-MYERS SQUIBB COMPANY-15123078

PATIENT
  Age: 58 Year
  Sex: Male

DRUGS (8)
  1. ZAMUDOL [Suspect]
     Dosage: ZAMUDOL LP. THEN 1/D FROM 07-APR-2010 TO 28-APR-2010
     Route: 048
     Dates: start: 20100301, end: 20100428
  2. STABLON [Suspect]
     Route: 048
     Dates: start: 20090101, end: 20100502
  3. NEURONTIN [Suspect]
     Route: 048
     Dates: end: 20100503
  4. ENBREL [Suspect]
     Route: 058
     Dates: start: 20091101, end: 20100429
  5. ATRIPLA [Suspect]
     Dosage: 1 DF= 600 MG/200MG/245MG
     Route: 048
     Dates: start: 20090701, end: 20100501
  6. APROVEL TABS 150 MG [Suspect]
     Route: 048
     Dates: start: 20040101, end: 20100501
  7. METOJECT [Suspect]
     Dosage: METOJECT 10MG/ML. THEN 15 MG/WEEK FROM 07-APR-2010 TO 19-APR-2010
     Dates: start: 20090928, end: 20100419
  8. DAFALGAN [Suspect]
     Route: 048
     Dates: start: 20100301, end: 20100428

REACTIONS (5)
  - MUSCULOSKELETAL CHEST PAIN [None]
  - BACTERIAL INFECTION [None]
  - PANCYTOPENIA [None]
  - PNEUMONIA [None]
  - BACTERAEMIA [None]
